FAERS Safety Report 25100571 (Version 1)
Quarter: 2025Q1

REPORT INFORMATION
  Report Type: Spontaneous
  Country: ES (occurrence: ES)
  Receive Date: 20250320
  Receipt Date: 20250320
  Transmission Date: 20250408
  Serious: Yes (Other)
  Sender: DAIICHI
  Company Number: ES-009507513-2256434

PATIENT

DRUGS (2)
  1. QUIZARTINIB [Interacting]
     Active Substance: QUIZARTINIB
     Indication: Product used for unknown indication
     Route: 065
  2. POSACONAZOLE [Interacting]
     Active Substance: POSACONAZOLE
     Indication: Systemic mycosis
     Route: 048

REACTIONS (2)
  - Neurotoxicity [Unknown]
  - Drug interaction [Unknown]
